FAERS Safety Report 6517881-8 (Version None)
Quarter: 2009Q4

REPORT INFORMATION
  Report Type: 
  Country: None (occurrence: None)
  Receive Date: 20091224
  Receipt Date: 20090505
  Transmission Date: 20100525
  Serious: Yes (Other)
  Sender: FDA-Public Use
  Company Number: US-CELGENEUS-163-21880-09040624

PATIENT
  Sex: Male

DRUGS (2)
  1. REVLIMID [Suspect]
     Indication: MULTIPLE MYELOMA
     Route: 048
     Dates: start: 20090301
  2. REVLIMID [Suspect]
     Route: 048
     Dates: start: 20070501, end: 20080701

REACTIONS (5)
  - CONTUSION [None]
  - EPIDIDYMITIS [None]
  - EPISTAXIS [None]
  - HAEMORRHAGE [None]
  - SKIN CHAPPED [None]
